FAERS Safety Report 8782863 (Version 2)
Quarter: 2012Q4

REPORT INFORMATION
  Report Type: 
  Country: JP (occurrence: JP)
  Receive Date: 20120913
  Receipt Date: 20121016
  Transmission Date: 20130627
  Serious: Yes (Hospitalization)
  Sender: FDA-Public Use
  Company Number: JP-GLAXOSMITHKLINE-B0829920A

PATIENT
  Age: 67 Year
  Sex: Female
  Weight: 45 kg

DRUGS (2)
  1. HYCAMTIN [Suspect]
     Indication: OVARIAN CANCER RECURRENT
     Dosage: 1MGM2 per day
     Route: 042
     Dates: start: 20120312, end: 20120316
  2. KYTRIL [Concomitant]
     Dosage: 3MG per day
     Route: 042
     Dates: start: 20120312, end: 20120316

REACTIONS (8)
  - Anaemia [Recovered/Resolved]
  - Alanine aminotransferase increased [Recovered/Resolved]
  - Febrile neutropenia [Recovered/Resolved]
  - Red blood cell count decreased [Recovered/Resolved]
  - Blood urea increased [Recovered/Resolved]
  - White blood cell count decreased [Recovered/Resolved]
  - Neutrophil count decreased [Recovered/Resolved]
  - Platelet count decreased [Recovered/Resolved]
